FAERS Safety Report 8911226 (Version 1)
Quarter: 2012Q4

REPORT INFORMATION
  Report Type: 
  Country: US (occurrence: US)
  Receive Date: 20121115
  Receipt Date: 20121115
  Transmission Date: 20130627
  Serious: Yes (Other)
  Sender: FDA-Public Use
  Company Number: US-ROCHE-1136888

PATIENT
  Sex: Female

DRUGS (2)
  1. RAPTIVA [Suspect]
     Indication: PSORIASIS
     Route: 065
  2. RAPTIVA [Suspect]
     Indication: PUSTULAR PSORIASIS

REACTIONS (1)
  - General physical health deterioration [Unknown]
